FAERS Safety Report 24843568 (Version 1)
Quarter: 2025Q1

REPORT INFORMATION
  Report Type: Spontaneous
  Country: FR (occurrence: FR)
  Receive Date: 20250115
  Receipt Date: 20250115
  Transmission Date: 20250409
  Serious: Yes (Hospitalization, Other)
  Sender: AUROBINDO
  Company Number: FR-AFSSAPS-AVGR2024000221

PATIENT
  Age: 20 Year
  Sex: Male
  Weight: 87 kg

DRUGS (3)
  1. DIAZEPAM [Suspect]
     Active Substance: DIAZEPAM
     Indication: Product used for unknown indication
     Route: 065
     Dates: start: 20231027, end: 20231027
  2. CANNABIS SATIVA SUBSP. INDICA TOP [Suspect]
     Active Substance: CANNABIS SATIVA SUBSP. INDICA TOP
     Indication: Product used for unknown indication
     Route: 065
     Dates: start: 20231027, end: 20231027
  3. COCAINE [Suspect]
     Active Substance: COCAINE
     Indication: Product used for unknown indication
     Route: 065
     Dates: start: 20231027, end: 20231027

REACTIONS (3)
  - Coma [Recovered/Resolved]
  - Drug use disorder [Recovered/Resolved]
  - Substance use disorder [Recovered/Resolved]

NARRATIVE: CASE EVENT DATE: 20231027
